FAERS Safety Report 13573172 (Version 2)
Quarter: 2017Q2

REPORT INFORMATION
  Report Type: Spontaneous
  Country: JP (occurrence: JP)
  Receive Date: 20170523
  Receipt Date: 20170607
  Transmission Date: 20170830
  Serious: Yes (Hospitalization, Other)
  Sender: FDA-Public Use
  Company Number: JP-SHIRE-JP201711339

PATIENT
  Age: 38 Year
  Sex: Male

DRUGS (2)
  1. LIALDA [Suspect]
     Active Substance: MESALAMINE
     Indication: COLITIS ULCERATIVE
     Dosage: 4.8 G, 1X/DAY:QD
     Route: 048
     Dates: start: 20170311, end: 20170407
  2. MIYA-BM [Concomitant]
     Active Substance: CLOSTRIDIUM BUTYRICUM SPORES STRAIN M-55
     Indication: PRODUCT USED FOR UNKNOWN INDICATION
     Dosage: UNK, UNKNOWN
     Route: 048

REACTIONS (2)
  - Colitis ulcerative [Recovering/Resolving]
  - Eosinophilic pneumonia [Recovering/Resolving]

NARRATIVE: CASE EVENT DATE: 20170325
